FAERS Safety Report 10077200 (Version 1)
Quarter: 2014Q2

REPORT INFORMATION
  Report Type: Spontaneous
  Country: US (occurrence: US)
  Receive Date: 20140414
  Receipt Date: 20140414
  Transmission Date: 20141212
  Serious: No
  Sender: FDA-Public Use
  Company Number: US-BANPHARM-20130854

PATIENT
  Age: 77 Year
  Sex: Male
  Weight: 81.65 kg

DRUGS (7)
  1. ALEVE LIQUID GELS 220MG [Suspect]
     Indication: ARTHRITIS
     Dosage: 1 DF, QD,
     Route: 048
     Dates: start: 2011
  2. BAYER 81MG ENTERIC ASPIRIN [Suspect]
     Indication: ISCHAEMIC HEART DISEASE PROPHYLAXIS
     Dosage: 1 DF, QD,
     Dates: start: 2008
  3. ANTIDEPRESSANT [Concomitant]
  4. HIGH BLOOD PRESSURE MEDICATION [Concomitant]
  5. ALTACE [Concomitant]
  6. STANDOSTATIN [Concomitant]
  7. SIMVASTATIN [Concomitant]

REACTIONS (3)
  - Contusion [Not Recovered/Not Resolved]
  - Haemorrhagic diathesis [Not Recovered/Not Resolved]
  - Incorrect drug administration duration [Unknown]
